FAERS Safety Report 4802779-3 (Version None)
Quarter: 2005Q4

REPORT INFORMATION
  Report Type: 
  Country: None (occurrence: None)
  Receive Date: 20051017
  Receipt Date: 20051017
  Transmission Date: 20060501
  Serious: Yes (Life-Threatening)
  Sender: FDA-Public Use
  Company Number: None

PATIENT
  Age: 69 Year
  Sex: Male
  Weight: 98 kg

DRUGS (12)
  1. METFORMIN 850MG [Suspect]
     Indication: DIABETES MELLITUS
     Dosage: 850MG TID PO
     Route: 048
  2. CIMETIDINE [Suspect]
     Indication: DIVERTICULITIS
     Dosage: 400MG BID PO
     Route: 048
  3. LOPID [Concomitant]
  4. HYDRALAZINE [Concomitant]
  5. CLONIDINE [Concomitant]
  6. NORVASC [Concomitant]
  7. LESCOL XL [Concomitant]
  8. POTASSIUM CHLORIDE [Concomitant]
  9. ATENOLOL [Concomitant]
  10. LASIX [Concomitant]
  11. ALLOPURINOL [Concomitant]
  12. GLUCOTROL XL [Concomitant]

REACTIONS (1)
  - LACTIC ACIDOSIS [None]
